FAERS Safety Report 22127862 (Version 2)
Quarter: 2023Q2

REPORT INFORMATION
  Report Type: Spontaneous
  Country: US (occurrence: US)
  Receive Date: 20230323
  Receipt Date: 20230413
  Transmission Date: 20230721
  Serious: Yes (Hospitalization)
  Sender: FDA-Public Use
  Company Number: US-UNITED THERAPEUTICS-UNT-2023-007165

PATIENT
  Age: 64 Year
  Sex: Female

DRUGS (6)
  1. TYVASO DPI [Suspect]
     Active Substance: TREPROSTINIL
     Indication: Pulmonary arterial hypertension
     Dosage: 32 ?G, QID
  2. TYVASO DPI [Suspect]
     Active Substance: TREPROSTINIL
     Dosage: UNK
     Dates: start: 202212
  3. TYVASO DPI [Suspect]
     Active Substance: TREPROSTINIL
     Indication: Pulmonary arterial hypertension
     Dosage: UNK
  4. LETAIRIS [Concomitant]
     Active Substance: AMBRISENTAN
     Indication: Pulmonary arterial hypertension
     Dosage: 10 MG, QD
     Route: 065
     Dates: start: 20220802
  5. ORENCIA [Concomitant]
     Active Substance: ABATACEPT
     Indication: Rheumatoid arthritis
     Dosage: 125 ?G, UNK
     Route: 065
     Dates: start: 20221213
  6. DUPIXENT [Concomitant]
     Active Substance: DUPILUMAB
     Indication: Dermatitis atopic
     Dosage: 300 MG UNK
     Route: 065
     Dates: start: 202003

REACTIONS (4)
  - Dyspnoea [Unknown]
  - Fluid retention [Unknown]
  - Oedema peripheral [Unknown]
  - Product dose omission issue [Recovered/Resolved]

NARRATIVE: CASE EVENT DATE: 20230301
